FAERS Safety Report 8055744-X (Version None)
Quarter: 2012Q1

REPORT INFORMATION
  Report Type: 
  Country: None (occurrence: None)
  Receive Date: 20120119
  Receipt Date: 20120112
  Transmission Date: 20120608
  Serious: Yes (Hospitalization)
  Sender: FDA-Public Use
  Company Number: US-JNJFOC-20120105077

PATIENT
  Age: 85 Year
  Sex: Female
  Weight: 61.24 kg

DRUGS (3)
  1. MINOXIDIL [Suspect]
     Indication: ALOPECIA
     Route: 061
     Dates: start: 20110101
  2. MINOXIDIL [Suspect]
     Route: 061
     Dates: start: 20090101, end: 20110101
  3. UNKNOWN MEDICATION [Concomitant]
     Route: 065

REACTIONS (4)
  - MYOCARDIAL INFARCTION [None]
  - WRONG DRUG ADMINISTERED [None]
  - PNEUMONIA [None]
  - HAIR TEXTURE ABNORMAL [None]
